FAERS Safety Report 11805208 (Version 1)
Quarter: 2015Q4

REPORT INFORMATION
  Report Type: Spontaneous
  Country: US (occurrence: None)
  Receive Date: 20151204
  Receipt Date: 20151204
  Transmission Date: 20160305
  Serious: Yes (Other)
  Sender: FDA-Public Use
  Company Number: None

PATIENT
  Age: 51 Year
  Sex: Male
  Weight: 95.26 kg

DRUGS (13)
  1. VITAMIN D [Concomitant]
     Active Substance: CHOLECALCIFEROL
  2. MENS OVER 50 VITAMIN [Concomitant]
  3. PERCOCET [Concomitant]
     Active Substance: ACETAMINOPHEN\OXYCODONE HYDROCHLORIDE
  4. SUMATRIPTAN. [Concomitant]
     Active Substance: SUMATRIPTAN
  5. TAMSULOSIN [Concomitant]
     Active Substance: TAMSULOSIN
  6. BIOTIN [Concomitant]
     Active Substance: BIOTIN
  7. FENTANYL. [Concomitant]
     Active Substance: FENTANYL
  8. CRESTOR [Concomitant]
     Active Substance: ROSUVASTATIN CALCIUM
  9. IRON [Concomitant]
     Active Substance: IRON
  10. ATENOLOL. [Concomitant]
     Active Substance: ATENOLOL
  11. ST JOHNS WORT [Concomitant]
     Active Substance: ST. JOHN^S WORT
  12. MOVANTIK [Suspect]
     Active Substance: NALOXEGOL OXALATE
     Indication: CONSTIPATION
     Route: 048
     Dates: start: 20151020, end: 20151020
  13. TESTOSTERONE. [Concomitant]
     Active Substance: TESTOSTERONE

REACTIONS (6)
  - Flatulence [None]
  - Retching [None]
  - Abdominal pain upper [None]
  - Diarrhoea [None]
  - Nausea [None]
  - Back pain [None]

NARRATIVE: CASE EVENT DATE: 20151120
